FAERS Safety Report 25278498 (Version 2)
Quarter: 2025Q2

REPORT INFORMATION
  Report Type: Spontaneous
  Country: IN (occurrence: IN)
  Receive Date: 20250507
  Receipt Date: 20250512
  Transmission Date: 20250716
  Serious: Yes (Hospitalization)
  Sender: MYLAN
  Company Number: IN-MYLANLABS-2025M1038301

PATIENT
  Age: 20 Year
  Sex: Male

DRUGS (20)
  1. LOPERAMIDE [Suspect]
     Active Substance: LOPERAMIDE
     Indication: Diarrhoea
  2. LOPERAMIDE [Suspect]
     Active Substance: LOPERAMIDE
     Route: 048
  3. LOPERAMIDE [Suspect]
     Active Substance: LOPERAMIDE
     Route: 048
  4. LOPERAMIDE [Suspect]
     Active Substance: LOPERAMIDE
  5. TRIHEXYPHENIDYL [Suspect]
     Active Substance: TRIHEXYPHENIDYL
     Indication: Obsessive-compulsive disorder
     Dosage: 2 MILLIGRAM, QD
  6. TRIHEXYPHENIDYL [Suspect]
     Active Substance: TRIHEXYPHENIDYL
     Dosage: 2 MILLIGRAM, QD
     Route: 048
  7. TRIHEXYPHENIDYL [Suspect]
     Active Substance: TRIHEXYPHENIDYL
     Dosage: 2 MILLIGRAM, QD
     Route: 048
  8. TRIHEXYPHENIDYL [Suspect]
     Active Substance: TRIHEXYPHENIDYL
     Dosage: 2 MILLIGRAM, QD
  9. VALPROATE SODIUM [Suspect]
     Active Substance: VALPROATE SODIUM
     Indication: Obsessive-compulsive disorder
     Dosage: 1000 MILLIGRAM, QD
  10. VALPROATE SODIUM [Suspect]
     Active Substance: VALPROATE SODIUM
     Dosage: 1000 MILLIGRAM, QD
     Route: 048
  11. VALPROATE SODIUM [Suspect]
     Active Substance: VALPROATE SODIUM
     Dosage: 1000 MILLIGRAM, QD
     Route: 048
  12. VALPROATE SODIUM [Suspect]
     Active Substance: VALPROATE SODIUM
     Dosage: 1000 MILLIGRAM, QD
  13. RISPERIDONE [Suspect]
     Active Substance: RISPERIDONE
     Indication: Obsessive-compulsive disorder
     Dosage: 3 MILLIGRAM, QD
  14. RISPERIDONE [Suspect]
     Active Substance: RISPERIDONE
     Dosage: 3 MILLIGRAM, QD
     Route: 048
  15. RISPERIDONE [Suspect]
     Active Substance: RISPERIDONE
     Dosage: 3 MILLIGRAM, QD
     Route: 048
  16. RISPERIDONE [Suspect]
     Active Substance: RISPERIDONE
     Dosage: 3 MILLIGRAM, QD
  17. FLUVOXAMINE [Suspect]
     Active Substance: FLUVOXAMINE
     Indication: Obsessive-compulsive disorder
     Dosage: 200 MILLIGRAM, QD
  18. FLUVOXAMINE [Suspect]
     Active Substance: FLUVOXAMINE
     Dosage: 200 MILLIGRAM, QD
     Route: 048
  19. FLUVOXAMINE [Suspect]
     Active Substance: FLUVOXAMINE
     Dosage: 200 MILLIGRAM, QD
     Route: 048
  20. FLUVOXAMINE [Suspect]
     Active Substance: FLUVOXAMINE
     Dosage: 200 MILLIGRAM, QD

REACTIONS (6)
  - Drug ineffective for unapproved indication [Unknown]
  - Syncope [Recovering/Resolving]
  - Drug dependence [Recovering/Resolving]
  - Intentional overdose [Recovering/Resolving]
  - Drug abuse [Recovering/Resolving]
  - Off label use [Unknown]
